FAERS Safety Report 8726601 (Version 3)
Quarter: 2012Q4

REPORT INFORMATION
  Report Type: 
  Country: MX (occurrence: MX)
  Receive Date: 20120816
  Receipt Date: 20121003
  Transmission Date: 20130627
  Serious: Yes (Hospitalization, Other)
  Sender: FDA-Public Use
  Company Number: MX-ELI_LILLY_AND_COMPANY-MX201208002844

PATIENT
  Age: 57 Year
  Sex: Female
  Weight: 134.97 kg

DRUGS (10)
  1. ZYPREXA [Suspect]
     Indication: SCHIZOPHRENIA
     Dosage: 2.5 mg, qd
     Route: 048
     Dates: start: 1997, end: 2004
  2. ZYPREXA [Suspect]
     Dosage: 10 mg, UNK
  3. ZYPREXA [Suspect]
     Dosage: UNK, unknown
     Dates: start: 2010
  4. DABIGATRAN ETEXILATE [Concomitant]
  5. ACETYLSALICYLIC ACID W/CAFFEINE [Concomitant]
  6. PARACETAMOL [Concomitant]
  7. TRAMADOL [Concomitant]
  8. OMEPRAZOLE [Concomitant]
  9. AKINETON                                /AUS/ [Concomitant]
  10. RISPERDAL [Concomitant]

REACTIONS (5)
  - Weight increased [Not Recovered/Not Resolved]
  - Hospitalisation [Unknown]
  - Drug dependence [Not Recovered/Not Resolved]
  - Restlessness [Not Recovered/Not Resolved]
  - Wrong technique in drug usage process [Not Recovered/Not Resolved]
